FAERS Safety Report 5153806-8 (Version None)
Quarter: 2006Q4

REPORT INFORMATION
  Report Type: 
  Country: None (occurrence: None)
  Receive Date: 20061120
  Receipt Date: 20061107
  Transmission Date: 20070319
  Serious: Yes (Hospitalization)
  Sender: FDA-Public Use
  Company Number: PHRM2006FR03002

PATIENT
  Age: 74 Year
  Sex: Female

DRUGS (3)
  1. TEGRETOL [Suspect]
     Dosage: 400 MG, BID
     Route: 048
     Dates: end: 20060330
  2. TEGRETOL [Suspect]
     Dosage: 200 MG, BID
     Route: 048
     Dates: start: 20060401
  3. ACETAMINOPHEN W/ PROPOXYPHENE HCL [Suspect]
     Indication: SCIATICA
     Dosage: 60/800 MG, TID
     Route: 048
     Dates: start: 20060324, end: 20060330

REACTIONS (13)
  - ABNORMAL BEHAVIOUR [None]
  - BLOOD SODIUM DECREASED [None]
  - BRAIN SCAN ABNORMAL [None]
  - CEREBRAL ATROPHY [None]
  - DISORIENTATION [None]
  - DRUG INTERACTION [None]
  - DRUG LEVEL ABOVE THERAPEUTIC [None]
  - DRUG TOXICITY [None]
  - FALL [None]
  - FLUID INTAKE RESTRICTION [None]
  - GAIT DISTURBANCE [None]
  - HYPONATRAEMIA [None]
  - SCIATICA [None]
